FAERS Safety Report 11230517 (Version 2)
Quarter: 2015Q3

REPORT INFORMATION
  Report Type: Spontaneous
  Country: IT (occurrence: None)
  Receive Date: 20150629
  Receipt Date: 20150722
  Transmission Date: 20151125
  Serious: Yes (Hospitalization)
  Sender: FDA-Public Use
  Company Number: DEP_03093_2015

PATIENT
  Age: 34 Year
  Sex: Female

DRUGS (1)
  1. PALEXIA [Suspect]
     Active Substance: TAPENTADOL HYDROCHLORIDE
     Indication: PRODUCT USED FOR UNKNOWN INDICATION
     Dosage: 1050 MG 1X, NOT THE PRESCRIBED AMOUNT ORAL
     Route: 048
     Dates: start: 20150604, end: 20150604

REACTIONS (5)
  - Blood pressure increased [None]
  - Anger [None]
  - Suicide attempt [None]
  - Breath sounds abnormal [None]
  - Depressed mood [None]

NARRATIVE: CASE EVENT DATE: 20150604
